FAERS Safety Report 9620864 (Version 1)
Quarter: 2013Q4

REPORT INFORMATION
  Report Type: Spontaneous
  Country: US (occurrence: US)
  Receive Date: 20131015
  Receipt Date: 20131015
  Transmission Date: 20140711
  Serious: Yes (Hospitalization)
  Sender: FDA-Public Use
  Company Number: US-BAYER-2013-124255

PATIENT
  Age: 38 Year
  Sex: Female
  Weight: 56.69 kg

DRUGS (9)
  1. YAZ [Suspect]
  2. NAPROSYN [Concomitant]
  3. Z-PAK [Concomitant]
     Indication: BRONCHITIS
  4. OMEGA 3 FISH OIL [Concomitant]
  5. GLUCOSAMINE [Concomitant]
  6. CHONDROITIN [Concomitant]
  7. CALCIUM [Concomitant]
  8. CLARITIN [Concomitant]
  9. OXYCODONE [Concomitant]

REACTIONS (1)
  - Deep vein thrombosis [None]
